FAERS Safety Report 25133987 (Version 1)
Quarter: 2025Q1

REPORT INFORMATION
  Report Type: Spontaneous
  Country: US (occurrence: US)
  Receive Date: 20250328
  Receipt Date: 20250328
  Transmission Date: 20250409
  Serious: Yes (Death, Other)
  Sender: DR REDDYS
  Company Number: US-DRL-USA-USA/2025/03/004428

PATIENT
  Age: 66 Year
  Sex: Male

DRUGS (3)
  1. DAPTOMYCIN [Suspect]
     Active Substance: DAPTOMYCIN
     Indication: Bacterial pericarditis
  2. CEFTAROLINE [Concomitant]
     Active Substance: CEFTAROLINE
     Indication: Bacterial pericarditis
  3. VANCOMYCIN [Concomitant]
     Active Substance: VANCOMYCIN
     Indication: Bacterial pericarditis

REACTIONS (1)
  - Drug ineffective for unapproved indication [Fatal]
